FAERS Safety Report 8533983-9 (Version None)
Quarter: 2012Q3

REPORT INFORMATION
  Report Type: 
  Country: None (occurrence: None)
  Receive Date: 20120724
  Receipt Date: 20120717
  Transmission Date: 20120928
  Serious: Yes (Congenital Anomaly, Other)
  Sender: FDA-Public Use
  Company Number: SE-009507513-1206USA02369B1

PATIENT

DRUGS (1)
  1. MAXALT [Suspect]
     Indication: HEADACHE
     Route: 064
     Dates: start: 20110501, end: 20120227

REACTIONS (2)
  - CLEFT LIP AND PALATE [None]
  - FOETAL EXPOSURE DURING PREGNANCY [None]
